FAERS Safety Report 4819262-1 (Version None)
Quarter: 2005Q4

REPORT INFORMATION
  Report Type: 
  Country: None (occurrence: None)
  Receive Date: 20051102
  Receipt Date: 20051102
  Transmission Date: 20060501
  Serious: Yes (Other)
  Sender: FDA-Public Use
  Company Number: None

PATIENT
  Age: 11 Year
  Sex: Male

DRUGS (2)
  1. ACYCLOVIR [Suspect]
     Indication: HERPES VIRUS INFECTION
     Dosage: 1 CAPSULE TWICE A DAY
     Dates: start: 20051015
  2. ACYCLOVIR [Suspect]
     Indication: RASH
     Dosage: 1 CAPSULE TWICE A DAY
     Dates: start: 20051015

REACTIONS (6)
  - BLISTER [None]
  - DISEASE RECURRENCE [None]
  - DRUG INEFFECTIVE [None]
  - HERPES VIRUS INFECTION [None]
  - PHARMACEUTICAL PRODUCT COMPLAINT [None]
  - RASH [None]
